FAERS Safety Report 4832089-X (Version None)
Quarter: 2005Q4

REPORT INFORMATION
  Report Type: 
  Country: None (occurrence: None)
  Receive Date: 20051116
  Receipt Date: 20051031
  Transmission Date: 20060501
  Serious: Yes (Hospitalization)
  Sender: FDA-Public Use
  Company Number: 200509IM000478

PATIENT
  Age: 59 Year
  Sex: Female

DRUGS (3)
  1. ADVAFERON (A643_INTERFERON ALFACON-1) [Suspect]
     Indication: HEPATITIS C
     Dosage: SEE IMAGE
     Dates: start: 20030217, end: 20030301
  2. URSODEOXYCHOLIC ACID [Concomitant]
  3. ADALAT [Concomitant]

REACTIONS (8)
  - ANOREXIA [None]
  - AUTOIMMUNE HEPATITIS [None]
  - BLOOD IMMUNOGLOBULIN G INCREASED [None]
  - GASTRITIS [None]
  - THERAPY NON-RESPONDER [None]
  - THYROID FUNCTION TEST ABNORMAL [None]
  - THYROIDITIS CHRONIC [None]
  - VIRAEMIA [None]
